FAERS Safety Report 9617928 (Version 2)
Quarter: 2013Q4

REPORT INFORMATION
  Report Type: Report from Study
  Country: JP (occurrence: JP)
  Receive Date: 20131011
  Receipt Date: 20131011
  Transmission Date: 20140711
  Serious: Yes (Death)
  Sender: FDA-Public Use
  Company Number: JP-MERCK-1206USA02180

PATIENT
  Age: 69 Year
  Sex: Male

DRUGS (18)
  1. GLACTIV [Suspect]
     Indication: TYPE 2 DIABETES MELLITUS
     Dosage: 25 MG DAILY
     Route: 048
     Dates: start: 20110407, end: 20110512
  2. GLACTIV [Suspect]
     Dosage: 50 MG, ONCE A DAY
     Route: 048
     Dates: start: 20110513, end: 20121217
  3. AMLODIPINE BESYLATE [Concomitant]
     Dosage: UNK
     Dates: end: 20121217
  4. GASTER D [Concomitant]
     Dosage: UNK
     Dates: end: 20121217
  5. DIOVAN [Concomitant]
     Dosage: UNK
     Dates: end: 20121217
  6. BAYASPIRIN [Concomitant]
     Dosage: UNK
     Dates: end: 20121217
  7. PLAVIX [Concomitant]
     Dosage: UNK
     Dates: end: 20121217
  8. CRESTOR [Concomitant]
     Dosage: UNK
     Dates: end: 20121217
  9. HERBESSER R [Concomitant]
     Dosage: UNK
     Dates: end: 20121217
  10. ITOROL [Concomitant]
     Dosage: UNK
     Dates: end: 20121217
  11. ETIZOLAM [Concomitant]
     Dosage: UNK
     Dates: end: 20121217
  12. DOGMATYL [Concomitant]
     Dosage: UNK
     Dates: end: 20121217
  13. NIKORANMART [Concomitant]
     Dosage: UNK
     Dates: end: 20121217
  14. MEDET [Concomitant]
     Dosage: UNK
     Dates: end: 20121217
  15. CELECOX [Concomitant]
     Dosage: UNK
     Dates: end: 20121217
  16. CYTOTEC [Concomitant]
     Dosage: UNK
     Dates: end: 20121217
  17. HOGUSU [Concomitant]
     Dosage: UNK
     Dates: start: 20110421, end: 20110426
  18. MAGMITT [Concomitant]
     Dosage: UNK
     Dates: start: 20111027, end: 20111102

REACTIONS (5)
  - Acute myocardial infarction [Fatal]
  - Constipation [Recovered/Resolved]
  - Back pain [Recovered/Resolved]
  - Weight increased [Not Recovered/Not Resolved]
  - Diabetes mellitus [Unknown]
